FAERS Safety Report 6283915-1 (Version None)
Quarter: 2009Q3

REPORT INFORMATION
  Report Type: 
  Country: None (occurrence: None)
  Receive Date: 20090722
  Receipt Date: 20090722
  Transmission Date: 20100115
  Serious: No
  Sender: FDA-Public Use
  Company Number: None

PATIENT
  Age: 47 Year
  Sex: Female
  Weight: 53.978 kg

DRUGS (1)
  1. SUMATRIPTAN SUCCINATE [Suspect]
     Indication: MIGRAINE
     Dosage: 1 TABLET ONE TIME, MAY REPE PO
     Route: 048
     Dates: start: 20090626

REACTIONS (7)
  - CHEST DISCOMFORT [None]
  - CHEST PAIN [None]
  - FEELING HOT [None]
  - OROPHARYNGEAL PAIN [None]
  - PARAESTHESIA [None]
  - PRODUCT LABEL ISSUE [None]
  - THROAT TIGHTNESS [None]
